FAERS Safety Report 20747079 (Version 1)
Quarter: 2022Q2

REPORT INFORMATION
  Report Type: Spontaneous
  Country: US (occurrence: US)
  Receive Date: 20220425
  Receipt Date: 20220425
  Transmission Date: 20220721
  Serious: No
  Sender: FDA-Public Use
  Company Number: US-PFIZER INC-202200318846

PATIENT

DRUGS (3)
  1. IBRANCE [Suspect]
     Active Substance: PALBOCICLIB
     Dosage: UNK (THEY SENT ME THE 125)
  2. IBRANCE [Suspect]
     Active Substance: PALBOCICLIB
     Dosage: UNK (I TOOK THE 100)
  3. IBRANCE [Suspect]
     Active Substance: PALBOCICLIB
     Dosage: UNK (NOW THEY DROPPED IN TO 75)

REACTIONS (1)
  - White blood cell count decreased [Unknown]
